FAERS Safety Report 8320460-3 (Version None)
Quarter: 2012Q2

REPORT INFORMATION
  Report Type: 
  Country: None (occurrence: None)
  Receive Date: 20120426
  Receipt Date: 20120426
  Transmission Date: 20120825
  Serious: Yes (Death, Hospitalization)
  Sender: FDA-Public Use
  Company Number: None

PATIENT
  Sex: Female
  Weight: 84 kg

DRUGS (1)
  1. DOXORUBICIN HYDROCHLORIDE [Suspect]
     Dosage: 576 MG
     Dates: end: 20070712

REACTIONS (4)
  - DYSPNOEA [None]
  - CARDIAC FAILURE [None]
  - CARDIOMYOPATHY [None]
  - ARTERIOSCLEROSIS [None]
